FAERS Safety Report 24276864 (Version 1)
Quarter: 2024Q3

REPORT INFORMATION
  Report Type: Spontaneous
  Country: US (occurrence: US)
  Receive Date: 20240903
  Receipt Date: 20240903
  Transmission Date: 20241017
  Serious: Yes (Other)
  Sender: GLAXOSMITHKLINE
  Company Number: US-GSKCCFUS-Case-02089079_AE-115437

PATIENT

DRUGS (1)
  1. NUCALA [Suspect]
     Active Substance: MEPOLIZUMAB
     Indication: Product used for unknown indication
     Dosage: UNK
     Dates: start: 202112

REACTIONS (3)
  - Arrhythmia [Unknown]
  - Heart rate abnormal [Unknown]
  - Infection [Unknown]

NARRATIVE: CASE EVENT DATE: 20240823
